FAERS Safety Report 6182861-1 (Version None)
Quarter: 2009Q2

REPORT INFORMATION
  Report Type: 
  Country: None (occurrence: None)
  Receive Date: 20090507
  Receipt Date: 20090427
  Transmission Date: 20091009
  Serious: Yes (Life-Threatening)
  Sender: FDA-Public Use
  Company Number: FR-AVENTIS-200912279EU

PATIENT
  Age: 74 Year
  Sex: Female

DRUGS (4)
  1. FLUDEX                             /00340101/ [Suspect]
     Indication: HYPERTENSION
     Route: 048
     Dates: end: 20081207
  2. COLCHIMAX (FRANCE) [Suspect]
     Dosage: DOSE: 1 DF
     Route: 048
     Dates: end: 20081207
  3. ALLOPURINOL [Suspect]
     Dosage: DOSE: UNK
     Route: 048
     Dates: end: 20081207
  4. AMLODIPINE BESYLATE [Suspect]
     Route: 048
     Dates: end: 20081207

REACTIONS (8)
  - ALANINE AMINOTRANSFERASE INCREASED [None]
  - ALOPECIA [None]
  - ASPARTATE AMINOTRANSFERASE INCREASED [None]
  - BONE MARROW FAILURE [None]
  - COAGULOPATHY [None]
  - CYTOLYTIC HEPATITIS [None]
  - DIARRHOEA [None]
  - SHOCK [None]
